FAERS Safety Report 5963269-8 (Version None)
Quarter: 2008Q4

REPORT INFORMATION
  Report Type: 
  Country: None (occurrence: None)
  Receive Date: 20081124
  Receipt Date: 20081117
  Transmission Date: 20090506
  Serious: Yes (Hospitalization)
  Sender: FDA-Public Use
  Company Number: JP-ASTRAZENECA-2008AP02181

PATIENT
  Age: 1 Year
  Sex: Male
  Weight: 9 kg

DRUGS (30)
  1. PULMICORT RESPULES [Suspect]
     Indication: ASTHMA
     Route: 055
     Dates: start: 20070915
  2. ONON [Concomitant]
     Indication: ASTHMA
     Dosage: NUMBER OF SEPARATE DOSAGES UNKNOWN
     Route: 048
     Dates: start: 20071107
  3. THEO-DUR [Concomitant]
     Indication: ASTHMA
     Dosage: AS REQUIRED
     Route: 055
     Dates: start: 20080121
  4. LEFTOSE [Concomitant]
     Indication: BRONCHITIS
     Dosage: AS REQUIRED
     Route: 055
     Dates: start: 20080121, end: 20080628
  5. BRICANYL [Concomitant]
     Indication: ASTHMA
     Dosage: AS REQUIRED
     Route: 048
     Dates: end: 20080229
  6. BRICANYL [Concomitant]
     Dosage: AS REQUIRED
     Route: 048
     Dates: start: 20080324, end: 20080706
  7. MEDICON [Concomitant]
     Indication: ASTHMA
     Dosage: AS REQUIRED
     Route: 048
     Dates: end: 20080229
  8. MEDICON [Concomitant]
     Dosage: AS REQUIRED
     Route: 048
     Dates: start: 20080324, end: 20080628
  9. MUCODYNE [Concomitant]
     Indication: ASTHMA
     Dosage: AS REQUIRED
     Route: 048
     Dates: end: 20080229
  10. MUCODYNE [Concomitant]
     Dosage: AS REQUIRED
     Route: 048
     Dates: start: 20080324, end: 20080628
  11. MUCODYNE [Concomitant]
     Dosage: AS REQUIRED
     Route: 048
     Dates: start: 20080628
  12. POLARAMINE [Concomitant]
     Indication: ASTHMA
     Dosage: AS REQUIRED
     Route: 048
     Dates: end: 20080229
  13. POLARAMINE [Concomitant]
     Dosage: AS REQUIRED
     Route: 048
     Dates: start: 20080324, end: 20080706
  14. DIAPP [Concomitant]
     Indication: CONVULSION PROPHYLAXIS
     Dosage: AS REQUIRED
     Route: 054
     Dates: start: 20080304
  15. SOLU-MEDROL [Concomitant]
     Indication: ASTHMA
     Dosage: AS REQUIRED
     Route: 041
     Dates: start: 20080306, end: 20080306
  16. SOLU-MEDROL [Concomitant]
     Dosage: AS REQUIRED
     Route: 041
     Dates: start: 20080508, end: 20080508
  17. SOLU-MEDROL [Concomitant]
     Dosage: NUMBER OF SEPARATE DOSAGES UNKNOWN
     Route: 041
     Dates: start: 20080628, end: 20080702
  18. SOLU-MEDROL [Concomitant]
     Dosage: NUMBER OF SEPARATE DOSAGES UNKNOWN
     Route: 041
     Dates: start: 20080706, end: 20080710
  19. ZITHROMAX [Concomitant]
     Indication: PNEUMONIA
     Dosage: NUMBER OF SEPARATE DOSAGES UNKNOWN
     Route: 048
     Dates: start: 20080625, end: 20080627
  20. LAC-B [Concomitant]
     Indication: GASTROENTERITIS
     Dosage: NUMBER OF SEPARATE DOSAGES UNKNOWN
     Route: 048
  21. LAC-B [Concomitant]
     Dosage: NUMBER OF SEPARATE DOSAGES UNKNOWN
     Route: 048
     Dates: start: 20080909, end: 20080914
  22. CLAFORAN [Concomitant]
     Indication: PNEUMONIA
     Dosage: NUMBER OF SEPARATE DOSAGES UNKNOWN
     Route: 041
     Dates: start: 20080628, end: 20080702
  23. UNASYN [Concomitant]
     Indication: PNEUMONIA
     Dosage: NUMBER OF SEPARATE DOSAGES UNKNOWN
     Route: 041
     Dates: start: 20080706, end: 20080710
  24. SAWACILLIN [Concomitant]
     Indication: PNEUMONIA
     Dosage: NUMBER OF SEPARATE DOSAGES UNKNOWN
     Route: 041
     Dates: start: 20080710, end: 20080713
  25. ASVERIN [Concomitant]
     Indication: ASTHMA
     Dosage: AS REQUIRED
     Route: 048
     Dates: start: 20080628
  26. HOKUNALIN:TAPE [Concomitant]
     Indication: ASTHMA
     Dosage: AS REQUIRED
     Route: 062
     Dates: start: 20080324
  27. HOKUNALIN [Concomitant]
     Indication: ASTHMA
     Dosage: AS REQUIRED
     Route: 048
     Dates: start: 20080715
  28. BIOFERMIN [Concomitant]
     Indication: GASTROENTERITIS
     Dosage: NUMBER OF SEPARATE DOSAGES UNKNOWN
     Route: 048
     Dates: start: 20080902, end: 20080909
  29. INTAL [Concomitant]
     Indication: ASTHMA
     Dosage: AS REQUIRED
     Route: 055
  30. VENETLIN [Concomitant]
     Indication: ASTHMA
     Dosage: AS REQUIRED
     Route: 055

REACTIONS (3)
  - ASTHMA [None]
  - BRONCHITIS [None]
  - PNEUMONIA [None]
